FAERS Safety Report 21855444 (Version 1)
Quarter: 2023Q1

REPORT INFORMATION
  Report Type: Spontaneous
  Country: ES (occurrence: ES)
  Receive Date: 20230112
  Receipt Date: 20230112
  Transmission Date: 20230418
  Serious: Yes (Hospitalization, Other)
  Sender: FDA-Public Use
  Company Number: ES-GILEAD-2022-0591627

PATIENT
  Age: 61 Year
  Sex: Male
  Weight: 111 kg

DRUGS (24)
  1. CYTARABINE [Suspect]
     Active Substance: CYTARABINE
     Indication: Mantle cell lymphoma
     Dosage: 1
     Route: 065
     Dates: start: 20220729, end: 20220730
  2. CYCLOPHOSPHAMIDE [Suspect]
     Active Substance: CYCLOPHOSPHAMIDE
     Indication: Mantle cell lymphoma
     Dosage: 1077
     Route: 065
     Dates: start: 20220825, end: 20220825
  3. CYCLOPHOSPHAMIDE [Suspect]
     Active Substance: CYCLOPHOSPHAMIDE
     Dosage: 1077
     Route: 065
     Dates: start: 20220826, end: 20220826
  4. CYCLOPHOSPHAMIDE [Suspect]
     Active Substance: CYCLOPHOSPHAMIDE
     Dosage: 1077
     Route: 065
     Dates: start: 20220827, end: 20220827
  5. FLUDARABINE [Suspect]
     Active Substance: FLUDARABINE PHOSPHATE
     Indication: Mantle cell lymphoma
     Dosage: 65 UNK
     Route: 065
     Dates: start: 20220825, end: 20220825
  6. FLUDARABINE [Suspect]
     Active Substance: FLUDARABINE PHOSPHATE
     Dosage: 65 UNK
     Route: 065
     Dates: start: 20220826, end: 20220826
  7. FLUDARABINE [Suspect]
     Active Substance: FLUDARABINE PHOSPHATE
     Dosage: 65 UNK
     Route: 065
     Dates: start: 20220827, end: 20220827
  8. MESNA [Suspect]
     Active Substance: MESNA
     Indication: Mantle cell lymphoma
     Dosage: 538.52
     Route: 065
     Dates: start: 20220825, end: 20220825
  9. MESNA [Suspect]
     Active Substance: MESNA
     Dosage: 538.52
     Route: 065
     Dates: start: 20220826, end: 20220826
  10. MESNA [Suspect]
     Active Substance: MESNA
     Dosage: 538.52
     Route: 065
     Dates: start: 20220827, end: 20220827
  11. BREXUCABTAGENE AUTOLEUCEL [Concomitant]
     Active Substance: BREXUCABTAGENE AUTOLEUCEL
     Indication: Mantle cell lymphoma
     Route: 042
  12. DEXAMETHASONE [Concomitant]
     Active Substance: DEXAMETHASONE
     Dosage: 4,MG,DAILY
     Route: 048
     Dates: start: 20220701, end: 20220707
  13. OMEPRAZOLE [Concomitant]
     Active Substance: OMEPRAZOLE
     Dosage: 20 MG, DAILY
     Route: 048
  14. EVUSHELD [Concomitant]
     Active Substance: CILGAVIMAB\TIXAGEVIMAB
     Dosage: 2,OTHER,ONCE
     Route: 030
     Dates: start: 202207, end: 202207
  15. ALLOPURINOL [Concomitant]
     Active Substance: ALLOPURINOL
     Dosage: 300 MG, DAILY
     Route: 048
  16. ALLOPURINOL [Concomitant]
     Active Substance: ALLOPURINOL
     Dosage: 300 MG, DAILY
     Route: 048
  17. NITROGLYCERIN [Concomitant]
     Active Substance: NITROGLYCERIN
     Dosage: 0.4,MG,DAILY
     Route: 048
     Dates: start: 2013
  18. BISOPROLOL [Concomitant]
     Active Substance: BISOPROLOL
     Dosage: 2.5 MG, DAILY
     Route: 048
  19. BISOPROLOL [Concomitant]
     Active Substance: BISOPROLOL
     Dosage: 2.5,MG,DAILY
     Route: 048
  20. CALCIUM [Concomitant]
     Active Substance: CALCIUM
     Dosage: ND, MG, ONCE
     Route: 042
     Dates: start: 20220628, end: 20220628
  21. ATORVASTATIN [Concomitant]
     Active Substance: ATORVASTATIN
     Dosage: 10 MG, DAILY
     Route: 048
  22. ENALAPRIL [Concomitant]
     Active Substance: ENALAPRIL
     Dosage: 5 MG, DAILY
     Route: 048
  23. ENALAPRIL [Concomitant]
     Active Substance: ENALAPRIL
     Dosage: 5,MG,DAILY
     Route: 048
  24. ASPIRIN [Concomitant]
     Active Substance: ASPIRIN
     Dosage: 100 MG, DAILY
     Route: 048
     Dates: start: 2013

REACTIONS (3)
  - Hepatic cirrhosis [Recovered/Resolved]
  - Condition aggravated [Recovered/Resolved]
  - Renal impairment [Recovered/Resolved]

NARRATIVE: CASE EVENT DATE: 20220823
